FAERS Safety Report 12890088 (Version 1)
Quarter: 2016Q4

REPORT INFORMATION
  Report Type: Spontaneous
  Country: US (occurrence: US)
  Receive Date: 20161027
  Receipt Date: 20161027
  Transmission Date: 20170207
  Serious: No
  Sender: FDA-Public Use
  Company Number: US-MEDA-2016100083

PATIENT
  Age: 73 Year
  Sex: Male
  Weight: 91 kg

DRUGS (2)
  1. MUSE [Suspect]
     Active Substance: ALPROSTADIL
     Indication: ERECTILE DYSFUNCTION
     Route: 066
     Dates: start: 201608
  2. INSULIN [Concomitant]
     Active Substance: INSULIN NOS
     Indication: DIABETES MELLITUS

REACTIONS (2)
  - Drug ineffective [Unknown]
  - Wrong technique in product usage process [Recovered/Resolved]

NARRATIVE: CASE EVENT DATE: 201608
